FAERS Safety Report 14159471 (Version 4)
Quarter: 2018Q2

REPORT INFORMATION
  Report Type: Spontaneous
  Country: JP (occurrence: JP)
  Receive Date: 20171106
  Receipt Date: 20180517
  Transmission Date: 20180711
  Serious: Yes (Death, Life-Threatening)
  Sender: FDA-Public Use
  Company Number: JP-ACTELION-A-CH2017-161660

PATIENT
  Age: 76 Year
  Sex: Male

DRUGS (8)
  1. BERAPROST [Concomitant]
     Active Substance: BERAPROST
  2. TADALAFIL [Concomitant]
     Active Substance: TADALAFIL
  3. SELARA [Concomitant]
     Active Substance: EPLERENONE
  4. SAMSCA [Concomitant]
     Active Substance: TOLVAPTAN
  5. OXYGEN. [Concomitant]
     Active Substance: OXYGEN
  6. OPSUMIT [Suspect]
     Active Substance: MACITENTAN
     Indication: PULMONARY HYPERTENSION
     Dosage: 2.5 MG, QD
     Route: 048
     Dates: start: 20170912, end: 20171006
  7. WARFARIN [Concomitant]
     Active Substance: WARFARIN
  8. FUROSEMIDE. [Concomitant]
     Active Substance: FUROSEMIDE

REACTIONS (2)
  - Disseminated intravascular coagulation [Fatal]
  - Cardiac failure [Not Recovered/Not Resolved]

NARRATIVE: CASE EVENT DATE: 20171006
